FAERS Safety Report 12644174 (Version 1)
Quarter: 2016Q3

REPORT INFORMATION
  Report Type: Spontaneous
  Country: ES (occurrence: ES)
  Receive Date: 20160811
  Receipt Date: 20160811
  Transmission Date: 20161109
  Serious: Yes (Other)
  Sender: FDA-Public Use
  Company Number: ES-GLENMARK PHARMACEUTICALS INC, USA.-2016GMK023910

PATIENT
  Age: 37 Year
  Sex: Female

DRUGS (9)
  1. LAMOTRIGINE. [Suspect]
     Active Substance: LAMOTRIGINE
     Indication: PRODUCT USED FOR UNKNOWN INDICATION
     Dosage: 200 MG, QD
     Route: 065
     Dates: start: 201207
  2. QUETIAPINE. [Concomitant]
     Active Substance: QUETIAPINE
     Indication: NERVOUSNESS
     Dosage: 200 MG, QD
     Route: 065
     Dates: start: 201306, end: 201312
  3. ASENAPINE [Concomitant]
     Active Substance: ASENAPINE
     Indication: PRODUCT USED FOR UNKNOWN INDICATION
     Dosage: 5 MG, QD
     Route: 065
     Dates: start: 2012, end: 201212
  4. SODIUM VALPROATE [Concomitant]
     Active Substance: VALPROATE SODIUM
     Indication: PRODUCT USED FOR UNKNOWN INDICATION
     Dosage: 500 MG, QD
     Route: 065
     Dates: start: 201312
  5. LAMOTRIGINE. [Suspect]
     Active Substance: LAMOTRIGINE
     Dosage: 200 MG, QD
     Route: 065
     Dates: start: 201312, end: 201405
  6. ASENAPINE [Concomitant]
     Active Substance: ASENAPINE
     Dosage: 10 UNK, 10 MG/D
     Route: 065
     Dates: end: 2013
  7. LORMETAZEPAM [Concomitant]
     Active Substance: LORMETAZEPAM
     Indication: PRODUCT USED FOR UNKNOWN INDICATION
     Dosage: 2 MG, HS
     Route: 065
     Dates: start: 201206
  8. QUETIAPINE. [Concomitant]
     Active Substance: QUETIAPINE
     Indication: INSOMNIA
     Dosage: 100 MG, HS
     Route: 065
     Dates: start: 201212, end: 2013
  9. LAMOTRIGINE. [Suspect]
     Active Substance: LAMOTRIGINE
     Dosage: 100 MG, QD
     Route: 065
     Dates: start: 2013

REACTIONS (1)
  - Cataplexy [Recovered/Resolved]

NARRATIVE: CASE EVENT DATE: 201208
